FAERS Safety Report 20885480 (Version 1)
Quarter: 2022Q2

REPORT INFORMATION
  Report Type: Spontaneous
  Country: US (occurrence: US)
  Receive Date: 20220527
  Receipt Date: 20220527
  Transmission Date: 20220721
  Serious: Yes (Hospitalization)
  Sender: FDA-Public Use
  Company Number: US-CELGENE-USA-20220300778

PATIENT
  Age: 74 Year
  Sex: Female

DRUGS (1)
  1. REVLIMID [Suspect]
     Active Substance: LENALIDOMIDE
     Indication: Myelodysplastic syndrome
     Dosage: FREQUENCY TEXT: OTHER
     Route: 048
     Dates: start: 20220127

REACTIONS (10)
  - Fatigue [Unknown]
  - Blood urine present [Unknown]
  - Muscular weakness [Unknown]
  - Nausea [Unknown]
  - Chromaturia [Unknown]
  - Dehydration [Unknown]
  - Chapped lips [Unknown]
  - Hypotension [Unknown]
  - Urinary tract infection [Unknown]
  - Hypertension [Recovered/Resolved]

NARRATIVE: CASE EVENT DATE: 20220208
